FAERS Safety Report 6206523-7 (Version None)
Quarter: 2009Q2

REPORT INFORMATION
  Report Type: 
  Country: None (occurrence: None)
  Receive Date: 20090528
  Receipt Date: 20090522
  Transmission Date: 20091009
  Serious: Yes (Hospitalization, Other)
  Sender: FDA-Public Use
  Company Number: BR-ASTRAZENECA-2009UW13237

PATIENT
  Age: 93 Year
  Sex: Male

DRUGS (3)
  1. ATACAND [Suspect]
     Indication: HYPERTENSION
     Dosage: 1/2 TABLET
     Route: 048
     Dates: start: 20050101
  2. CRESTOR [Concomitant]
  3. CEBRALAT [Concomitant]

REACTIONS (1)
  - CEREBROVASCULAR ACCIDENT [None]
